FAERS Safety Report 22218893 (Version 1)
Quarter: 2023Q2

REPORT INFORMATION
  Report Type: Spontaneous
  Country: US (occurrence: US)
  Receive Date: 20230417
  Receipt Date: 20230417
  Transmission Date: 20230722
  Serious: Yes (Other)
  Sender: FDA-Public Use
  Company Number: US-BAYER-2023A045883

PATIENT
  Sex: Male

DRUGS (3)
  1. ASPIRIN [Suspect]
     Active Substance: ASPIRIN
     Dosage: UNK UNK,
  2. LIDOCAINE [Concomitant]
     Active Substance: LIDOCAINE
     Dosage: LIDOCAINE 1%
  3. EPINEPHRINE [Concomitant]
     Active Substance: EPINEPHRINE
     Dosage: 3ML

REACTIONS (2)
  - Post procedural haemorrhage [None]
  - Off label use [None]
